FAERS Safety Report 18902049 (Version 1)
Quarter: 2021Q1

REPORT INFORMATION
  Report Type: Spontaneous
  Country: FR (occurrence: FR)
  Receive Date: 20210216
  Receipt Date: 20210216
  Transmission Date: 20210420
  Serious: Yes (Death)
  Sender: FDA-Public Use
  Company Number: FR-TEVA-2021-FR-1879216

PATIENT
  Age: 39 Year
  Sex: Male

DRUGS (5)
  1. KETAMINE [Suspect]
     Active Substance: KETAMINE
     Dosage: NR
     Route: 065
  2. LOXAPINE BASE [Suspect]
     Active Substance: LOXAPINE
     Dosage: NR
     Route: 065
  3. METHADONE [Suspect]
     Active Substance: METHADONE HYDROCHLORIDE
     Dosage: NR
     Route: 065
  4. OXAZEPAM. [Suspect]
     Active Substance: OXAZEPAM
     Dosage: NR
     Route: 065
  5. ARIPIPRAZOLE. [Suspect]
     Active Substance: ARIPIPRAZOLE
     Dosage: NR
     Route: 065

REACTIONS (1)
  - Death [Fatal]
